FAERS Safety Report 6066339-1 (Version None)
Quarter: 2009Q1

REPORT INFORMATION
  Report Type: 
  Country: None (occurrence: None)
  Receive Date: 20090130
  Receipt Date: 20090116
  Transmission Date: 20090719
  Serious: Yes (Hospitalization, Disabling, Other)
  Sender: FDA-Public Use
  Company Number: 2006JP005228

PATIENT
  Age: 39 Year
  Sex: Male
  Weight: 49.5 kg

DRUGS (22)
  1. TACROLIMUS [Suspect]
     Indication: RENAL AND PANCREAS TRANSPLANT
     Dosage: 0.05 MG/KG, BID, ORAL; 3.5 MG, BID, ORAL; 2 MG, /D, ORAL
     Route: 048
     Dates: start: 20060525, end: 20060525
  2. TACROLIMUS [Suspect]
     Indication: RENAL AND PANCREAS TRANSPLANT
     Dosage: 0.05 MG/KG, BID, ORAL; 3.5 MG, BID, ORAL; 2 MG, /D, ORAL
     Route: 048
     Dates: start: 20060526, end: 20080114
  3. TACROLIMUS [Suspect]
     Indication: RENAL AND PANCREAS TRANSPLANT
     Dosage: 0.05 MG/KG, BID, ORAL; 3.5 MG, BID, ORAL; 2 MG, /D, ORAL
     Route: 048
     Dates: start: 20080115
  4. PROGRAF [Suspect]
     Indication: RENAL AND PANCREAS TRANSPLANT
     Dosage: 0.024 MG/KG, CONTINUOUS, IV DRIP
     Route: 041
     Dates: start: 20060526, end: 20060528
  5. CELLCEPT [Suspect]
     Indication: RENAL AND PANCREAS TRANSPLANT
     Dosage: 250 MG, BID, ORAL
     Route: 048
     Dates: start: 20060526, end: 20080115
  6. MEDROL [Suspect]
     Indication: RENAL AND PANCREAS TRANSPLANT
     Dosage: 4 MG, UID/QD, ORAL
     Route: 047
     Dates: start: 20060601
  7. METHYLPREDNISOLONE [Concomitant]
  8. PREDNISOLONE [Concomitant]
  9. SIMULECT [Concomitant]
  10. HUMULIN R [Concomitant]
  11. PROSTAGLANDIN E1 (ALPROSTADIL) INJECTION [Concomitant]
  12. HEPARIN [Concomitant]
  13. FOY (GABEXALTE MESILATE) INJECTION [Concomitant]
  14. CEFAMEZIN (CEFAZOLIN) INJECTION [Concomitant]
  15. FUNGUARD (MICAFUNGIN) INJECTION [Concomitant]
  16. OMEPRAL INJECTION [Concomitant]
  17. MAALOX [Concomitant]
  18. NOVORAPID (INSULIN ASPART) INJECTION [Concomitant]
  19. LANTUS [Concomitant]
  20. LUVOX (FLUVOXAMINE MALEATE) TABLET [Concomitant]
  21. DEPAS (ETIZOLAM) TABLET [Concomitant]
  22. ADALAT L TABLET [Concomitant]

REACTIONS (7)
  - ARTERIAL THROMBOSIS [None]
  - COMPLICATIONS OF TRANSPLANTED PANCREAS [None]
  - HYPERAMYLASAEMIA [None]
  - OPPORTUNISTIC INFECTION [None]
  - PNEUMONIA CRYPTOCOCCAL [None]
  - RENAL AND PANCREAS TRANSPLANT [None]
  - THROMBOTIC MICROANGIOPATHY [None]
